FAERS Safety Report 9984046 (Version 1)
Quarter: 2014Q1

REPORT INFORMATION
  Report Type: Spontaneous
  Country: US (occurrence: US)
  Receive Date: 20140307
  Receipt Date: 20140307
  Transmission Date: 20141002
  Serious: No
  Sender: FDA-Public Use
  Company Number: US-ABBVIE-13P-163-1183132-00

PATIENT
  Sex: Female
  Weight: 90.8 kg

DRUGS (3)
  1. HUMIRA [Suspect]
     Indication: RHEUMATOID ARTHRITIS
     Dates: start: 2008, end: 2010
  2. HUMIRA [Suspect]
     Dates: start: 201301
  3. METHOTREXATE [Concomitant]
     Indication: RHEUMATOID ARTHRITIS

REACTIONS (4)
  - Device malfunction [Not Recovered/Not Resolved]
  - Anxiety [Not Recovered/Not Resolved]
  - Injection site pain [Not Recovered/Not Resolved]
  - Rheumatoid arthritis [Recovered/Resolved]
